FAERS Safety Report 19262385 (Version 1)
Quarter: 2021Q2

REPORT INFORMATION
  Report Type: Other
  Country: DE (occurrence: DE)
  Receive Date: 20210516
  Receipt Date: 20210516
  Transmission Date: 20210717
  Serious: Yes (Hospitalization)
  Sender: FDA-Public Use
  Company Number: DE-CELLTRION INC.-2021DE006367

PATIENT

DRUGS (5)
  1. RITUXIMAB (UNKNOWN) [Suspect]
     Active Substance: RITUXIMAB
     Dosage: 600 MG, EVERY 6 MONTHS
     Route: 042
     Dates: start: 20201217
  2. EMSELEX [DARIFENACIN] [Concomitant]
     Dosage: 7.5 MG
     Dates: start: 201707
  3. RITUXIMAB (UNKNOWN) [Suspect]
     Active Substance: RITUXIMAB
     Indication: SECONDARY PROGRESSIVE MULTIPLE SCLEROSIS
     Dosage: EVERY 6 MONTHS
     Route: 042
     Dates: start: 201707
  4. RITUXIMAB (UNKNOWN) [Suspect]
     Active Substance: RITUXIMAB
     Dosage: EVERY 6 MONTHS
     Route: 042
     Dates: start: 2018
  5. EMSELEX [DARIFENACIN] [Concomitant]
     Dosage: 15 MG

REACTIONS (10)
  - Off label use [Unknown]
  - Micturition urgency [Recovering/Resolving]
  - Fall [Unknown]
  - Pelvic fracture [Unknown]
  - Fractured coccyx [Unknown]
  - Multiple sclerosis relapse [Recovering/Resolving]
  - Intentional product use issue [Unknown]
  - Fatigue [Not Recovered/Not Resolved]
  - Pain [Not Recovered/Not Resolved]
  - Joint range of motion decreased [Not Recovered/Not Resolved]

NARRATIVE: CASE EVENT DATE: 2018
